FAERS Safety Report 4845354-7 (Version None)
Quarter: 2005Q4

REPORT INFORMATION
  Report Type: 
  Country: None (occurrence: None)
  Receive Date: 20051205
  Receipt Date: 20051201
  Transmission Date: 20060501
  Serious: Yes (Other)
  Sender: FDA-Public Use
  Company Number: FR-LMS-050100

PATIENT
  Sex: Male

DRUGS (2)
  1. NABUCOX [Suspect]
     Route: 065
     Dates: start: 20050601
  2. AMAREL [Suspect]
     Route: 065

REACTIONS (2)
  - DRUG INTERACTION [None]
  - HYPOGLYCAEMIA [None]
